FAERS Safety Report 21479013 (Version 1)
Quarter: 2022Q4

REPORT INFORMATION
  Report Type: Spontaneous
  Country: CN (occurrence: CN)
  Receive Date: 20221019
  Receipt Date: 20221019
  Transmission Date: 20230112
  Serious: Yes (Life-Threatening)
  Sender: FDA-Public Use
  Company Number: CN-BAYER-2022A141273

PATIENT
  Age: 40 Year
  Sex: Male

DRUGS (7)
  1. MOXIFLOXACIN [Interacting]
     Active Substance: MOXIFLOXACIN
     Indication: Tuberculosis
     Dosage: 0.4 G, QD
     Route: 048
  2. ALCOHOL [Interacting]
     Active Substance: ALCOHOL
  3. LINEZOLID [Concomitant]
     Active Substance: LINEZOLID
     Indication: Tuberculosis
     Dosage: 600 MG, QD
     Route: 048
  4. CYCLOSERINE [Concomitant]
     Active Substance: CYCLOSERINE
     Indication: Tuberculosis
     Dosage: 750 MG, QD
     Route: 048
  5. CLOFAZIMINE [Concomitant]
     Active Substance: CLOFAZIMINE
     Indication: Tuberculosis
     Dosage: 100 MG, QD
     Route: 048
  6. PROTIONAMIDE [Concomitant]
     Active Substance: PROTIONAMIDE
     Indication: Tuberculosis
     Dosage: 0.6 G, QD
     Route: 048
  7. HU GAN [Concomitant]
     Indication: Hepatobiliary disorder prophylaxis
     Dosage: 4 DF, TID
     Route: 048

REACTIONS (2)
  - Alcohol intolerance [Recovering/Resolving]
  - Off label use [None]
